FAERS Safety Report 21946376 (Version 1)
Quarter: 2023Q1

REPORT INFORMATION
  Report Type: Spontaneous
  Country: US (occurrence: None)
  Receive Date: 20230202
  Receipt Date: 20230202
  Transmission Date: 20230417
  Serious: Yes (unspecified)
  Sender: FDA-Public Use
  Company Number: None

PATIENT
  Age: 60 Year
  Sex: Female
  Weight: 72 kg

DRUGS (7)
  1. DESVENLAFAXINE [Suspect]
     Active Substance: DESVENLAFAXINE
     Indication: Depression
     Dosage: OTHER QUANTITY : 1 TABLET(S);?FREQUENCY : DAILY;?
     Route: 048
  2. DESVENLAFAXINE [Suspect]
     Active Substance: DESVENLAFAXINE
     Indication: Anxiety
  3. 10mg/day Trintellix [Concomitant]
  4. 10mg/day time release adderall Trelegy Ellipta inhaler [Concomitant]
  5. Albuterol inhaler [Concomitant]
  6. multi vitamin [Concomitant]
  7. VITAMIN D NOS [Concomitant]
     Active Substance: VITAMIN D NOS

REACTIONS (11)
  - Adverse drug reaction [None]
  - Pain [None]
  - Abdominal discomfort [None]
  - Headache [None]
  - Electric shock sensation [None]
  - Thirst [None]
  - Insomnia [None]
  - Fatigue [None]
  - Emotional distress [None]
  - Suicidal ideation [None]
  - Withdrawal syndrome [None]

NARRATIVE: CASE EVENT DATE: 20230129
